FAERS Safety Report 12863936 (Version 1)
Quarter: 2016Q4

REPORT INFORMATION
  Report Type: Spontaneous
  Country: US (occurrence: US)
  Receive Date: 20161019
  Receipt Date: 20161019
  Transmission Date: 20170207
  Serious: Yes (Hospitalization, Disabling, Other)
  Sender: FDA-Public Use
  Company Number: PHEH2016US026636

PATIENT
  Age: 47 Year
  Sex: Female

DRUGS (1)
  1. GILENYA [Suspect]
     Active Substance: FINGOLIMOD HYDROCHLORIDE
     Indication: RELAPSING-REMITTING MULTIPLE SCLEROSIS
     Dosage: 0.5 MG, QD
     Route: 048
     Dates: start: 20141201, end: 20161010

REACTIONS (5)
  - Hypercalcaemia [Unknown]
  - B-cell lymphoma [Not Recovered/Not Resolved]
  - Central nervous system lesion [Unknown]
  - Gait disturbance [Unknown]
  - Confusional state [Unknown]
